FAERS Safety Report 21660612 (Version 1)
Quarter: 2022Q4

REPORT INFORMATION
  Report Type: Spontaneous
  Country: US (occurrence: US)
  Receive Date: 20221130
  Receipt Date: 20221130
  Transmission Date: 20230113
  Serious: No
  Sender: FDA-Public Use
  Company Number: US-SA-SAC20221129000029

PATIENT
  Age: 29 Year
  Sex: Female

DRUGS (9)
  1. DUPIXENT [Suspect]
     Active Substance: DUPILUMAB
     Indication: Eczema
     Dosage: 300 MG, QOW
     Route: 058
     Dates: start: 20190219
  2. DUPIXENT [Suspect]
     Active Substance: DUPILUMAB
     Dosage: 1 DF, QM
     Route: 058
  3. FOLIC ACID [Concomitant]
     Active Substance: FOLIC ACID
  4. KETOCONAZOLE [Concomitant]
     Active Substance: KETOCONAZOLE
  5. TACROLIMUS [Concomitant]
     Active Substance: TACROLIMUS
  6. FLONASE [Concomitant]
     Active Substance: FLUTICASONE PROPIONATE
  7. LORATADINE [Concomitant]
     Active Substance: LORATADINE
  8. NOTRES [Concomitant]
  9. VITAMINS NOS [Concomitant]
     Active Substance: VITAMINS

REACTIONS (1)
  - Inappropriate schedule of product administration [Unknown]
